FAERS Safety Report 4754972-6 (Version None)
Quarter: 2005Q3

REPORT INFORMATION
  Report Type: 
  Country: None (occurrence: None)
  Receive Date: 20050829
  Receipt Date: 20050817
  Transmission Date: 20060218
  Serious: No
  Sender: FDA-Public Use
  Company Number: 200517340GDDC

PATIENT
  Age: 57 Year
  Sex: Female

DRUGS (2)
  1. LANTUS [Suspect]
     Indication: DIABETES MELLITUS INSULIN-DEPENDENT
     Route: 058
     Dates: start: 20050501
  2. ACTRAPID [Concomitant]
     Indication: DIABETES MELLITUS INSULIN-DEPENDENT
     Route: 058

REACTIONS (7)
  - ELECTROCARDIOGRAM POOR R-WAVE PROGRESSION [None]
  - EMBOLISM [None]
  - HYPOAESTHESIA [None]
  - HYPOGLYCAEMIA [None]
  - PARALYSIS [None]
  - SPEECH DISORDER [None]
  - TRANSIENT ISCHAEMIC ATTACK [None]
